FAERS Safety Report 22156839 (Version 1)
Quarter: 2023Q1

REPORT INFORMATION
  Report Type: Spontaneous
  Country: GB (occurrence: GB)
  Receive Date: 20230330
  Receipt Date: 20230330
  Transmission Date: 20230417
  Serious: Yes (Life-Threatening, Hospitalization, Other)
  Sender: FDA-Public Use
  Company Number: None

PATIENT
  Age: 89 Year

DRUGS (6)
  1. CLOPIDOGREL BISULFATE [Suspect]
     Active Substance: CLOPIDOGREL BISULFATE
  2. CARBIMAZOLE [Concomitant]
     Active Substance: CARBIMAZOLE
  3. DILTIAZEM [Concomitant]
     Active Substance: DILTIAZEM
  4. IRBESARTAN [Concomitant]
     Active Substance: IRBESARTAN
  5. LANSOPRAZOLE [Concomitant]
     Active Substance: LANSOPRAZOLE
  6. NICORANDIL [Concomitant]
     Active Substance: NICORANDIL

REACTIONS (1)
  - Cerebrovascular accident [Recovered/Resolved]
